FAERS Safety Report 25947650 (Version 1)
Quarter: 2025Q4

REPORT INFORMATION
  Report Type: Spontaneous
  Country: US (occurrence: US)
  Receive Date: 20251022
  Receipt Date: 20251022
  Transmission Date: 20260118
  Serious: No
  Sender: ELI LILLY AND COMPANY
  Company Number: US-ELI_LILLY_AND_COMPANY-US202510014706

PATIENT
  Age: 51 Year

DRUGS (2)
  1. TALTZ [Suspect]
     Active Substance: IXEKIZUMAB
     Indication: Product used for unknown indication
     Dosage: 80 MG, SINGLE (LOADING DOSE)
     Route: 065
  2. TALTZ [Suspect]
     Active Substance: IXEKIZUMAB
     Dosage: 80 MG, SINGLE (LOADING DOSE)
     Route: 065

REACTIONS (5)
  - Feeling hot [Unknown]
  - Fatigue [Unknown]
  - Body temperature increased [Unknown]
  - Oropharyngeal pain [Unknown]
  - Injection site reaction [Unknown]
